FAERS Safety Report 4883793-9 (Version None)
Quarter: 2006Q1

REPORT INFORMATION
  Report Type: 
  Country: None (occurrence: None)
  Receive Date: 20060118
  Receipt Date: 20020624
  Transmission Date: 20060701
  Serious: Yes (Hospitalization)
  Sender: FDA-Public Use
  Company Number: US-ROCHE-315811

PATIENT
  Age: 64 Year
  Sex: Male
  Weight: 68 kg

DRUGS (25)
  1. DACLIZUMAB [Suspect]
     Dosage: FREQUENCY X5.
     Route: 042
     Dates: start: 20000720, end: 20000722
  2. GANCICLOVIR [Concomitant]
     Dates: start: 20000720
  3. DOBUTAMINE [Concomitant]
     Dates: start: 20000719, end: 20000722
  4. CALCIUM CHLORIDE [Concomitant]
     Dates: start: 20000719, end: 20000723
  5. PRIMACOR [Concomitant]
     Dates: start: 20000719, end: 20000722
  6. LEVOPHED [Concomitant]
     Dates: start: 20000719, end: 20000721
  7. MYCOSTATIN [Concomitant]
     Dates: start: 20000720
  8. ZANTAC [Concomitant]
     Dates: start: 20000719, end: 20000722
  9. FENTANYL [Concomitant]
     Dates: start: 20000719, end: 20000722
  10. PEPCID [Concomitant]
     Dates: start: 20000723
  11. BACTRIM [Concomitant]
     Dates: start: 20000723
  12. FERROUS GLUCONATE [Concomitant]
     Dates: start: 20000723
  13. VANCOMYCIN [Concomitant]
     Dates: start: 20000720, end: 20000721
  14. SOLU-MEDROL [Concomitant]
     Dates: start: 20000720, end: 20000804
  15. PREDNISONE [Concomitant]
     Dates: start: 20000805
  16. PRAVACHOL [Concomitant]
     Dates: start: 20000724
  17. ATGAM [Concomitant]
     Dates: start: 20000722, end: 20000728
  18. ORTHOCLONE OKT3 [Concomitant]
     Dates: start: 20000726, end: 20000727
  19. PROGRAF [Concomitant]
     Dates: start: 20000802
  20. COLACE [Concomitant]
     Dates: start: 20000723
  21. CITRICAL [Concomitant]
     Dates: start: 20000723
  22. LASIX [Concomitant]
     Dates: start: 20000730
  23. DOPAMINE [Concomitant]
     Dates: start: 20000730
  24. CELLCEPT [Concomitant]
     Dates: start: 20000720
  25. CYCLOSPORINE [Concomitant]
     Dates: start: 20000729, end: 20000801

REACTIONS (3)
  - ENTEROCOCCAL INFECTION [None]
  - PNEUMONIA [None]
  - PNEUMONIA KLEBSIELLA [None]
